FAERS Safety Report 5723285-8 (Version None)
Quarter: 2008Q2

REPORT INFORMATION
  Report Type: 
  Country: None (occurrence: None)
  Receive Date: 20080430
  Receipt Date: 20080418
  Transmission Date: 20081010
  Serious: Yes (Disabling, Other)
  Sender: FDA-Public Use
  Company Number: US-ROCHE-335457

PATIENT
  Sex: Female

DRUGS (2)
  1. VERSED [Suspect]
     Indication: NAUSEA
     Dosage: VIA A MORPHINE PUMP (MEDTRONIC SYNCHROMED).OTHER INDICATION: FAILED BACK SYNDROME
     Route: 037
     Dates: start: 20010101
  2. MORPHINE SULFATE [Suspect]
     Route: 065

REACTIONS (6)
  - AMNESIA [None]
  - BRAIN INJURY [None]
  - COMA [None]
  - INCORRECT ROUTE OF DRUG ADMINISTRATION [None]
  - MEMORY IMPAIRMENT [None]
  - WITHDRAWAL SYNDROME [None]
